FAERS Safety Report 15454196 (Version 1)
Quarter: 2018Q4

REPORT INFORMATION
  Report Type: Spontaneous
  Country: US (occurrence: US)
  Receive Date: 20181002
  Receipt Date: 20181002
  Transmission Date: 20190204
  Serious: Yes (Other)
  Sender: FDA-Public Use
  Company Number: US-AEGERION PHARMACEUTICAL, INC-AEGR003992

PATIENT
  Age: 59 Year
  Sex: Female
  Weight: 65.31 kg

DRUGS (1)
  1. JUXTAPID [Suspect]
     Active Substance: LOMITAPIDE MESYLATE
     Indication: TYPE IIA HYPERLIPIDAEMIA
     Dosage: 10 MG, QD
     Route: 048
     Dates: start: 201706

REACTIONS (7)
  - Back pain [Unknown]
  - Pancreatitis [Unknown]
  - Nausea [Unknown]
  - Pyrexia [Unknown]
  - Therapy cessation [Unknown]
  - Mobility decreased [Unknown]
  - Flank pain [Unknown]

NARRATIVE: CASE EVENT DATE: 2018
